FAERS Safety Report 13290616 (Version 1)
Quarter: 2017Q1

REPORT INFORMATION
  Report Type: Spontaneous
  Country: CA (occurrence: CA)
  Receive Date: 20170302
  Receipt Date: 20170302
  Transmission Date: 20170428
  Serious: Yes (Life-Threatening, Hospitalization, Other)
  Sender: FDA-Public Use
  Company Number: CA-TEVA-744538ACC

PATIENT
  Age: 83 Year
  Sex: Male
  Weight: 94 kg

DRUGS (25)
  1. APO-AMLODIPINE [Concomitant]
     Active Substance: AMLODIPINE BESYLATE
  2. DILAUDID [Concomitant]
     Active Substance: HYDROMORPHONE HYDROCHLORIDE
  3. MYLAN-NITRO SUBLINGUAL SPRAY [Concomitant]
     Active Substance: NITROGLYCERIN
  4. PMS-FERROUS SULFATE [Concomitant]
  5. APO FLURAZEPAM [Concomitant]
  6. LUPRON DEPOT [Concomitant]
     Active Substance: LEUPROLIDE ACETATE
  7. ZYTIGA [Concomitant]
     Active Substance: ABIRATERONE ACETATE
  8. EURO D [Concomitant]
  9. RAN-CELECOXIB [Concomitant]
  10. RAN-CLOPIDOGREL [Concomitant]
  11. ZYTIGA [Interacting]
     Active Substance: ABIRATERONE ACETATE
     Indication: PROSTATE CANCER
     Dosage: 1 GRAM DAILY;
     Route: 048
  12. ONEALFA [Concomitant]
     Active Substance: ALFACALCIDOL
  13. APO-RANITIDINE [Concomitant]
     Active Substance: RANITIDINE
  14. LANTUS [Concomitant]
     Active Substance: INSULIN GLARGINE
  15. XGEVA [Concomitant]
     Active Substance: DENOSUMAB
  16. ONE TOUCH TOPICAL ANESTHETIC GEL [Concomitant]
  17. RAN-PANTOPRAZOLE [Concomitant]
     Active Substance: PANTOPRAZOLE SODIUM
  18. RAPAFLO [Concomitant]
     Active Substance: SILODOSIN
  19. ROSUVASTATIN. [Suspect]
     Active Substance: ROSUVASTATIN
     Indication: DYSLIPIDAEMIA
     Dosage: 40 MILLIGRAM DAILY;
  20. APO-PREDNISONE [Concomitant]
     Active Substance: PREDNISONE
  21. ASAPHEN EC [Concomitant]
  22. APO-GLICLAZIDE [Concomitant]
     Active Substance: GLICLAZIDE
  23. PMS-ATENOLOL [Concomitant]
  24. ROSUVASTATIN. [Concomitant]
     Active Substance: ROSUVASTATIN
  25. TRAJENTA [Concomitant]
     Active Substance: LINAGLIPTIN

REACTIONS (5)
  - Rhabdomyolysis [Not Recovered/Not Resolved]
  - Haemodialysis [Not Recovered/Not Resolved]
  - Drug interaction [Not Recovered/Not Resolved]
  - Acute kidney injury [Not Recovered/Not Resolved]
  - Hepatotoxicity [Not Recovered/Not Resolved]
